FAERS Safety Report 13755272 (Version 2)
Quarter: 2017Q3

REPORT INFORMATION
  Report Type: Spontaneous
  Country: AU (occurrence: AU)
  Receive Date: 20170714
  Receipt Date: 20170721
  Transmission Date: 20171127
  Serious: Yes (Hospitalization, Disabling)
  Sender: FDA-Public Use
  Company Number: AU-REGENERON PHARMACEUTICALS, INC.-2017-18615

PATIENT

DRUGS (3)
  1. EYLEA [Suspect]
     Active Substance: AFLIBERCEPT
     Indication: AGE-RELATED MACULAR DEGENERATION
     Dosage: UNK, Q4WK
     Route: 031
     Dates: start: 201601
  2. EYLEA [Suspect]
     Active Substance: AFLIBERCEPT
     Dosage: UNK, Q6WK
     Route: 031
  3. EYLEA [Suspect]
     Active Substance: AFLIBERCEPT
     Dosage: UNK, Q4WK
     Route: 031

REACTIONS (5)
  - Sciatica [Unknown]
  - Balance disorder [Unknown]
  - Drug dose omission [Unknown]
  - General physical health deterioration [Unknown]
  - Hypersensitivity [Unknown]
